FAERS Safety Report 13821007 (Version 1)
Quarter: 2017Q3

REPORT INFORMATION
  Report Type: Spontaneous
  Country: NL (occurrence: NL)
  Receive Date: 20170801
  Receipt Date: 20170801
  Transmission Date: 20171127
  Serious: Yes (Other)
  Sender: FDA-Public Use
  Company Number: NL-MYLANLABS-2017M1045967

PATIENT

DRUGS (2)
  1. BUPIVACAINE. [Suspect]
     Active Substance: BUPIVACAINE
     Indication: FRACTURE PAIN
     Route: 008
  2. LIDOCAINE. [Suspect]
     Active Substance: LIDOCAINE
     Indication: FRACTURE PAIN
     Route: 008

REACTIONS (1)
  - Methaemoglobinaemia [Recovering/Resolving]
